FAERS Safety Report 7250591-0 (Version None)
Quarter: 2011Q1

REPORT INFORMATION
  Report Type: 
  Country: None (occurrence: None)
  Receive Date: 20110121
  Receipt Date: 20110121
  Transmission Date: 20110831
  Serious: Yes (Hospitalization)
  Sender: FDA-Public Use
  Company Number: None

PATIENT
  Age: 58 Year
  Sex: Female
  Weight: 65.318 kg

DRUGS (7)
  1. GABAPENTIN [Concomitant]
  2. CYMBALTA [Concomitant]
  3. CELEBREX [Concomitant]
  4. VITAMIN D [Concomitant]
  5. GLUCOSAMINE-CHONDROITEN SULFATE [Concomitant]
  6. RISEDRONATE [Suspect]
  7. ALENDRONATE [Suspect]

REACTIONS (1)
  - FEMUR FRACTURE [None]
